FAERS Safety Report 4763165-8 (Version None)
Quarter: 2005Q3

REPORT INFORMATION
  Report Type: 
  Country: None (occurrence: None)
  Receive Date: 20050902
  Receipt Date: 20050824
  Transmission Date: 20060218
  Serious: Yes (Other)
  Sender: FDA-Public Use
  Company Number: 12210

PATIENT
  Age: 42 Year
  Sex: Female

DRUGS (7)
  1. VINCRISTINE [Suspect]
     Indication: NEOPLASM RECURRENCE
     Dates: start: 20040220, end: 20040220
  2. VINCRISTINE [Suspect]
     Indication: OLIGODENDROGLIOMA
     Dates: start: 20040220, end: 20040220
  3. VINCRISTINE [Suspect]
     Indication: NEOPLASM RECURRENCE
     Dates: start: 20040227, end: 20040227
  4. VINCRISTINE [Suspect]
     Indication: OLIGODENDROGLIOMA
     Dates: start: 20040227, end: 20040227
  5. NIMUSTINE HYDROCHLORIDE [Concomitant]
  6. PROCARBAZINE [Concomitant]
  7. CARBAMAZEPINE [Concomitant]

REACTIONS (7)
  - EOSINOPHIL COUNT INCREASED [None]
  - LYMPHOCYTE COUNT DECREASED [None]
  - LYMPHOCYTIC INFILTRATION [None]
  - RASH ERYTHEMATOUS [None]
  - RASH PRURITIC [None]
  - SKIN REACTION [None]
  - WHITE BLOOD CELL COUNT DECREASED [None]
